FAERS Safety Report 7131301-4 (Version None)
Quarter: 2010Q4

REPORT INFORMATION
  Report Type: 
  Country: None (occurrence: None)
  Receive Date: 20101201
  Receipt Date: 20101118
  Transmission Date: 20110411
  Serious: Yes (Hospitalization)
  Sender: FDA-Public Use
  Company Number: GXKR2010DK13031

PATIENT
  Sex: Female
  Weight: 50 kg

DRUGS (1)
  1. METHOTREXATE SANDOZ (NGX) [Suspect]
     Indication: SERONEGATIVE ARTHRITIS
     Dosage: 15 MG, QW
     Route: 048
     Dates: start: 20080227

REACTIONS (2)
  - BRONCHIOLOALVEOLAR CARCINOMA [None]
  - HEPATIC CYST [None]
